FAERS Safety Report 10089998 (Version 1)
Quarter: 2014Q2

REPORT INFORMATION
  Report Type: Spontaneous
  Country: US (occurrence: US)
  Receive Date: 20140421
  Receipt Date: 20140421
  Transmission Date: 20141212
  Serious: Yes (Other)
  Sender: FDA-Public Use
  Company Number: US-TEVA-476179USA

PATIENT
  Age: 50 Year
  Sex: Female
  Weight: 98.52 kg

DRUGS (25)
  1. COPAXONE [Suspect]
     Indication: PRODUCT USED FOR UNKNOWN INDICATION
     Dosage: UNKNOWN
  2. AMPYRA [Suspect]
     Indication: GAIT DISTURBANCE
     Dosage: 20 MILLIGRAM DAILY;
     Route: 048
  3. AVONEX [Suspect]
     Indication: PRODUCT USED FOR UNKNOWN INDICATION
     Dosage: UNKNOWN
  4. NEURONTIN [Concomitant]
  5. METHOCARBAMOL [Concomitant]
  6. VITAMIN D [Concomitant]
  7. LIPITOR [Concomitant]
  8. CYMBALTA [Concomitant]
     Dosage: 30 AND 60 MG
  9. NALTREXONE [Concomitant]
  10. MAGNESIUM [Concomitant]
  11. CINNAMON [Concomitant]
  12. NIACIN [Concomitant]
  13. RUTIN [Concomitant]
  14. VITAMIN E [Concomitant]
  15. VITAMIN B12 [Concomitant]
  16. ADVIL [Concomitant]
  17. DOCUSATE SODIUM [Concomitant]
  18. COQ10 [Concomitant]
  19. CRANBERRY [Concomitant]
     Dosage: 8 PILLS PER DAY
  20. MELATONIN [Concomitant]
  21. TYSABRI [Concomitant]
     Dosage: INFUSION
  22. LOVASTATIN [Concomitant]
  23. RITALIN [Concomitant]
  24. ROPINIROLE HYDROCHLORIDE [Concomitant]
  25. UNSPECIFIED STOOL SOFTENER [Concomitant]

REACTIONS (9)
  - Hemiplegia [Unknown]
  - Multiple sclerosis [Not Recovered/Not Resolved]
  - Musculoskeletal stiffness [Recovered/Resolved]
  - Cognitive disorder [Unknown]
  - Therapeutic response changed [Unknown]
  - Pain [Unknown]
  - Sleep disorder [Recovering/Resolving]
  - Drug effect decreased [Not Recovered/Not Resolved]
  - Adverse drug reaction [Recovered/Resolved]
